FAERS Safety Report 9356712 (Version 1)
Quarter: 2013Q2

REPORT INFORMATION
  Report Type: Report from Study
  Country: DE (occurrence: DE)
  Receive Date: 20130619
  Receipt Date: 20130619
  Transmission Date: 20140414
  Serious: Yes (Death, Hospitalization)
  Sender: FDA-Public Use
  Company Number: PHHY2010DE53558

PATIENT
  Age: 69 Year
  Sex: Male
  Weight: 97 kg

DRUGS (9)
  1. AMN107 [Suspect]
     Indication: MYELODYSPLASTIC SYNDROME
     Dosage: 400 MG, DAILY
     Dates: start: 20091031
  2. AMN107 [Suspect]
     Dosage: 800 MG, DAILY
  3. AMN107 [Suspect]
     Dosage: 400 MG, DAILY
  4. INSIDON [Concomitant]
  5. CONCOR [Concomitant]
     Dosage: UNK UKN, UNK
     Dates: start: 200811
  6. ASS [Concomitant]
     Dosage: UNK UKN, UNK
     Dates: start: 200811
  7. DELIX [Concomitant]
     Dosage: UNK UKN, UNK
     Dates: start: 200911
  8. TOREM [Concomitant]
     Dosage: UNK UKN, UNK
     Dates: start: 200811, end: 20091119
  9. VALPROIC ACID [Concomitant]
     Indication: MYELODYSPLASTIC SYNDROME

REACTIONS (4)
  - Death [Fatal]
  - Pancytopenia [Not Recovered/Not Resolved]
  - Anaemia [Not Recovered/Not Resolved]
  - Thrombocytopenia [Recovered/Resolved]
